FAERS Safety Report 5564484-8 (Version None)
Quarter: 2007Q4

REPORT INFORMATION
  Report Type: 
  Country: None (occurrence: None)
  Receive Date: 20071212
  Receipt Date: 20071126
  Transmission Date: 20080405
  Serious: Yes (Hospitalization)
  Sender: FDA-Public Use
  Company Number: A-US2007-15120

PATIENT
  Age: 8 Year
  Sex: Male

DRUGS (1)
  1. ZAVESCA [Suspect]
     Indication: NIEMANN-PICK DISEASE
     Dates: start: 20061201, end: 20070301

REACTIONS (3)
  - CLOSTRIDIUM DIFFICILE COLITIS [None]
  - CONVULSION [None]
  - RESPIRATORY TRACT INFECTION [None]
